FAERS Safety Report 7574416-9 (Version None)
Quarter: 2011Q2

REPORT INFORMATION
  Report Type: 
  Country: None (occurrence: None)
  Receive Date: 20110627
  Receipt Date: 20110520
  Transmission Date: 20111010
  Serious: No
  Sender: FDA-Public Use
  Company Number: US-BAYER-2011-044058

PATIENT
  Age: 81 Year
  Sex: Female
  Weight: 54 kg

DRUGS (7)
  1. DEXILANT [Concomitant]
  2. ZEGERID [Concomitant]
  3. ALEVE (CAPLET) [Suspect]
     Dosage: 220 MG, TID
     Route: 048
     Dates: start: 20110517, end: 20110519
  4. AMBIEN [Concomitant]
  5. MULTI-VITAMIN [Concomitant]
  6. ALEVE (CAPLET) [Suspect]
     Indication: ANALGESIC THERAPY
     Dosage: 220 MG, BID
     Route: 048
     Dates: start: 20110516
  7. VOLTAREN [Concomitant]

REACTIONS (2)
  - PAIN [None]
  - ABDOMINAL DISCOMFORT [None]
